FAERS Safety Report 7216532-7 (Version None)
Quarter: 2011Q1

REPORT INFORMATION
  Report Type: 
  Country: None (occurrence: None)
  Receive Date: 20110108
  Receipt Date: 20101220
  Transmission Date: 20110831
  Serious: No
  Sender: FDA-Public Use
  Company Number: US-B.I. PHARMACEUTICALS,INC./RIDGEFIELD-2010-BP-14944BP

PATIENT
  Sex: Female

DRUGS (6)
  1. AMITRIPTYLINE [Concomitant]
     Indication: INSOMNIA
  2. ALENDRONATE SODIUM [Concomitant]
     Indication: OSTEOPOROSIS
  3. PREMARIN [Concomitant]
     Indication: MENOPAUSE
  4. MULTI-VITAMIN [Concomitant]
     Indication: PROPHYLAXIS
  5. SPIRIVA [Suspect]
     Indication: CHRONIC OBSTRUCTIVE PULMONARY DISEASE
     Dosage: 18 MCG
     Route: 055
     Dates: start: 20081201
  6. LEVOXYL [Concomitant]
     Indication: HYPOTHYROIDISM

REACTIONS (1)
  - DEMENTIA [None]
